FAERS Safety Report 22190895 (Version 1)
Quarter: 2023Q2

REPORT INFORMATION
  Report Type: Spontaneous
  Country: US (occurrence: None)
  Receive Date: 20230407
  Receipt Date: 20230407
  Transmission Date: 20230722
  Serious: Yes (Hospitalization)
  Sender: FDA-Public Use
  Company Number: None

PATIENT
  Age: 65 Year
  Sex: Female
  Weight: 76.2 kg

DRUGS (13)
  1. CAPECITABINE [Suspect]
     Active Substance: CAPECITABINE
     Indication: Breast cancer female
     Dosage: 1500-1000MG TWICE A DAY ORAL? ?
     Route: 048
     Dates: start: 20221018
  2. ASPIRIN [Concomitant]
     Active Substance: ASPIRIN
  3. ATORVASTATIN [Concomitant]
     Active Substance: ATORVASTATIN
  4. BENZALKONIUM CHLORIDE\LIDOCAINE [Concomitant]
     Active Substance: BENZALKONIUM CHLORIDE\LIDOCAINE
  5. DOXYCYCLINE [Concomitant]
  6. LEVOTHYROXINE [Concomitant]
     Active Substance: LEVOTHYROXINE
  7. Mebendazole Powder [Concomitant]
  8. METFORMIN [Concomitant]
  9. Multi-Vitamin [Concomitant]
  10. NALOXONE [Concomitant]
     Active Substance: NALOXONE
  11. ONDANSETRON [Concomitant]
     Active Substance: ONDANSETRON
  12. PERCOCET [Concomitant]
     Active Substance: ACETAMINOPHEN\OXYCODONE HYDROCHLORIDE
  13. TUKYSA [Concomitant]
     Active Substance: TUCATINIB

REACTIONS (5)
  - Haemorrhage [None]
  - Prescribed overdose [None]
  - Respiration abnormal [None]
  - Pain [None]
  - Therapeutic response decreased [None]
